FAERS Safety Report 6340824-7 (Version None)
Quarter: 2009Q3

REPORT INFORMATION
  Report Type: 
  Country: None (occurrence: None)
  Receive Date: 20090904
  Receipt Date: 20090827
  Transmission Date: 20100115
  Serious: No
  Sender: FDA-Public Use
  Company Number: US-EISAI INC.-E3810-03065-SPO-US

PATIENT
  Sex: Female

DRUGS (2)
  1. ACIPHEX [Suspect]
     Route: 048
     Dates: start: 20020101, end: 20090101
  2. CLOPIDOGREL [Concomitant]
     Route: 048

REACTIONS (1)
  - CEREBROVASCULAR ACCIDENT [None]
